FAERS Safety Report 6110658-7 (Version None)
Quarter: 2009Q1

REPORT INFORMATION
  Report Type: 
  Country: None (occurrence: None)
  Receive Date: 20090306
  Receipt Date: 20090220
  Transmission Date: 20090719
  Serious: Yes (Other)
  Sender: FDA-Public Use
  Company Number: 231994K09USA

PATIENT
  Age: 54 Year
  Sex: Female
  Weight: 55 kg

DRUGS (3)
  1. REBIF [Suspect]
     Indication: MULTIPLE SCLEROSIS
     Dosage: 44 MCG, 3 IN 1 WEEKS, SUBCUTANEOUS
     Route: 058
     Dates: start: 20040107
  2. WELLBUTRIN [Concomitant]
  3. KLONOPIN [Concomitant]

REACTIONS (2)
  - FALL [None]
  - ROTATOR CUFF SYNDROME [None]
